FAERS Safety Report 9414232 (Version 2)
Quarter: 2013Q3

REPORT INFORMATION
  Report Type: Other
  Country: GB (occurrence: GB)
  Receive Date: 20130723
  Receipt Date: 20130907
  Transmission Date: 20140515
  Serious: Yes (Hospitalization, Disabling, Other)
  Sender: FDA-Public Use
  Company Number: GB-SUN PHARMACEUTICAL INDUSTRIES LTD-2013SUN01067

PATIENT
  Age: 60 Year
  Sex: Female

DRUGS (17)
  1. LETROZOLE [Suspect]
     Indication: BREAST CANCER METASTATIC
     Dosage: 2.5 MG, UNK
     Route: 048
     Dates: start: 20121129, end: 201305
  2. ANASTROZOLE 1MG FILM COATED TABLETS [Suspect]
     Indication: BREAST CANCER METASTATIC
     Dosage: 1 MG, UNK
     Route: 048
     Dates: start: 20130520
  3. CO-DANTHRAMER [Concomitant]
  4. LEVEMIR [Concomitant]
  5. MEZOLAR MATRIX [Concomitant]
  6. SEVREDOL [Concomitant]
  7. BUMETANIDE [Concomitant]
  8. CITALOPRAM [Concomitant]
  9. CYCLIZINE [Concomitant]
  10. FERROUS FUMARATE [Concomitant]
  11. GLICLAZIDE [Concomitant]
  12. LISINOPRIL [Concomitant]
  13. METFORMIN [Concomitant]
  14. OMEPRAZOLE [Concomitant]
  15. SERVEDOL [Concomitant]
  16. TRAMADOL [Concomitant]
  17. ZOPICLONE [Concomitant]

REACTIONS (2)
  - Mania [Recovered/Resolved with Sequelae]
  - Psychotic disorder [Recovered/Resolved with Sequelae]
